FAERS Safety Report 7603047-7 (Version None)
Quarter: 2011Q3

REPORT INFORMATION
  Report Type: 
  Country: None (occurrence: None)
  Receive Date: 20110712
  Receipt Date: 20110712
  Transmission Date: 20111222
  Serious: Yes (Death)
  Sender: FDA-Public Use
  Company Number: None

PATIENT
  Age: 80 Day
  Sex: Male
  Weight: 5.8967 kg

DRUGS (1)
  1. CONCENTRATED TYLENOL INFANT DROPS [Suspect]
     Indication: PYREXIA
     Dosage: LESS THAN .06 ML
     Route: 048
     Dates: start: 20100307, end: 20100314

REACTIONS (2)
  - SUDDEN INFANT DEATH SYNDROME [None]
  - PRODUCT QUALITY ISSUE [None]
